FAERS Safety Report 17376486 (Version 1)
Quarter: 2020Q1

REPORT INFORMATION
  Report Type: Spontaneous
  Country: US (occurrence: US)
  Receive Date: 20200122
  Receipt Date: 20200122
  Transmission Date: 20200409
  Serious: Yes (Other)
  Sender: FDA-Public Use
  Company Number: None

PATIENT
  Age: 66 Year
  Sex: Female
  Weight: 88.45 kg

DRUGS (2)
  1. CO-Q10 TAKEN WITH CHOLESTEROL DRUG [Concomitant]
  2. ELIQUIS [Suspect]
     Active Substance: APIXABAN

REACTIONS (2)
  - Platelet count decreased [None]
  - Drug level increased [None]

NARRATIVE: CASE EVENT DATE: 20191220
